FAERS Safety Report 17903690 (Version 1)
Quarter: 2020Q2

REPORT INFORMATION
  Report Type: Spontaneous
  Country: DE (occurrence: DE)
  Receive Date: 20200616
  Receipt Date: 20200616
  Transmission Date: 20200714
  Serious: Yes (Congenital Anomaly, Other)
  Sender: FDA-Public Use
  Company Number: DE-PFIZER INC-2020232037

PATIENT
  Age: 1 Day
  Sex: Male
  Weight: 3.58 kg

DRUGS (3)
  1. CETIRIZINE [Concomitant]
     Active Substance: CETIRIZINE HYDROCHLORIDE
     Indication: SEASONAL ALLERGY
     Dosage: 10 MG, AS NEEDED (10 MG/DAY. ONLY, IF NEEDED, 12. - 16. GESTATIONAL WEEK)
     Route: 064
  2. VOMEX A [Concomitant]
     Active Substance: DIMENHYDRINATE
     Indication: MORNING SICKNESS
     Dosage: 120 MG, DAILY (120 MG, 1.TRIMESTER, 9. - 20. GESTATIONAL WEEK, DIFFERENT DATES, START AT GW 9 OR 12)
     Route: 064
  3. VENLAFAXINE HCL [Suspect]
     Active Substance: VENLAFAXINE HYDROCHLORIDE
     Indication: ANXIETY DISORDER
     Dosage: 150 MG (150 MG/D GW 14 THEN SLOW REDUCTION UNTIL DELIVERY: 37.5 MG/D (0. - 36.6. GESTATIONAL WEEK))
     Route: 064
     Dates: start: 20181123, end: 20190808

REACTIONS (6)
  - Anomalous pulmonary venous connection [Recovered/Resolved with Sequelae]
  - Pulmonary arterial hypertension [Recovered/Resolved]
  - Patent ductus arteriosus [Recovered/Resolved with Sequelae]
  - Premature baby [Recovered/Resolved]
  - Atrial septal defect [Recovered/Resolved with Sequelae]
  - Maternal exposure during pregnancy [Unknown]

NARRATIVE: CASE EVENT DATE: 20190808
